FAERS Safety Report 21916343 (Version 1)
Quarter: 2023Q1

REPORT INFORMATION
  Report Type: Spontaneous
  Country: None (occurrence: US)
  Receive Date: 20230126
  Receipt Date: 20230126
  Transmission Date: 20230418
  Serious: Yes (Other)
  Sender: FDA-Public Use
  Company Number: US-GREER Laboratories, Inc.-2137112

PATIENT
  Age: 10 Year
  Sex: Male
  Weight: 37.6 kg

DRUGS (29)
  1. STANDARDIZED MITE, DERMATOPHAGOIDES FARINAE [Suspect]
     Active Substance: DERMATOPHAGOIDES FARINAE
     Indication: Rhinitis allergic
     Route: 058
     Dates: start: 20201118
  2. STANDARDIZED MITE DERMATOPHAGOIDES PTERONYSSINUS [Suspect]
     Active Substance: DERMATOPHAGOIDES PTERONYSSINUS
     Route: 058
     Dates: start: 20201118
  3. STANDARDIZED CAT HAIR [Suspect]
     Active Substance: FELIS CATUS HAIR
     Route: 058
     Dates: start: 20201118
  4. AMERICAN BEECH POLLEN [Suspect]
     Active Substance: FAGUS GRANDIFOLIA POLLEN
     Route: 058
     Dates: start: 20201118
  5. ASH MIX, GREEN/WHITE POLLEN [Suspect]
     Active Substance: FRAXINUS AMERICANA POLLEN\FRAXINUS PENNSYLVANICA POLLEN
     Route: 058
     Dates: start: 20201118
  6. WHITE POPLAR POLLEN [Suspect]
     Active Substance: POPULUS ALBA POLLEN
     Route: 058
     Dates: start: 20201118
  7. BOX ELDER [Suspect]
     Active Substance: ACER NEGUNDO POLLEN
     Route: 058
     Dates: start: 20201118
  8. RED CEDAR POLLEN [Suspect]
     Active Substance: JUNIPERUS VIRGINIANA POLLEN
     Route: 058
     Dates: start: 20201118
  9. EASTERN SYCAMORE POLLEN [Suspect]
     Active Substance: PLATANUS OCCIDENTALIS POLLEN
     Route: 058
     Dates: start: 20201118
  10. HACKBERRY POLLEN [Suspect]
     Active Substance: CELTIS OCCIDENTALIS POLLEN
     Route: 058
     Dates: start: 20201118
  11. SHAGBARK HICKORY POLLEN [Suspect]
     Active Substance: CARYA OVATA POLLEN
     Route: 058
     Dates: start: 20201118
  12. RIVER BIRCH POLLEN [Suspect]
     Active Substance: BETULA NIGRA POLLEN
     Route: 058
     Dates: start: 20201118
  13. BLACK WALNUT (JUGLANS NIGRA POLLEN) [Suspect]
     Active Substance: JUGLANS NIGRA POLLEN
     Route: 058
     Dates: start: 20201118
  14. STANDARDIZED KENTUCKY BLUE (JUNE) GRASS [Suspect]
     Active Substance: POA PRATENSIS POLLEN
     Route: 058
     Dates: start: 20201118
  15. STANDARDIZED TIMOTHY GRASS [Suspect]
     Active Substance: PHLEUM PRATENSE POLLEN
     Route: 058
     Dates: start: 20201118
  16. COCKLEBUR POLLEN [Suspect]
     Active Substance: XANTHIUM STRUMARIUM POLLEN
     Route: 058
     Dates: start: 20201118
  17. JOHNSON GRASS POLLEN [Suspect]
     Active Substance: SORGHUM HALEPENSE POLLEN
     Route: 058
     Dates: start: 20201118
  18. SHORT RAGWEED POLLEN [Suspect]
     Active Substance: AMBROSIA ARTEMISIIFOLIA POLLEN
     Route: 058
     Dates: start: 20201118
  19. DOCK-SORREL MIX [Suspect]
     Active Substance: RUMEX ACETOSELLA POLLEN\RUMEX CRISPUS POLLEN
     Route: 058
     Dates: start: 20201118
  20. COMMON MUGWORT POLLEN [Suspect]
     Active Substance: ARTEMISIA VULGARIS POLLEN
     Route: 058
     Dates: start: 20201118
  21. ENGLISH PLANTAIN POLLEN [Suspect]
     Active Substance: PLANTAGO LANCEOLATA POLLEN
     Route: 058
     Dates: start: 20201118
  22. ALTERNARIA ALTERNATA [Suspect]
     Active Substance: ALTERNARIA ALTERNATA
     Route: 058
     Dates: start: 20201118
  23. DRECHSLERA SPICIFERA [Suspect]
     Active Substance: COCHLIOBOLUS SPICIFER
     Route: 058
     Dates: start: 20201118
  24. EPICOCCUM NIGRUM [Suspect]
     Active Substance: EPICOCCUM NIGRUM
     Route: 058
     Dates: start: 20201118
  25. GEOTRICHUM CANDIDUM [Suspect]
     Active Substance: GEOTRICHUM CANDIDUM
     Route: 058
     Dates: start: 20201118
  26. STEMPHYLIUM SOLANI [Suspect]
     Active Substance: STEMPHYLIUM SOLANI
     Route: 058
     Dates: start: 20201118
  27. CETIRIZINE [Concomitant]
     Active Substance: CETIRIZINE HYDROCHLORIDE
  28. FLONASE [Concomitant]
     Active Substance: FLUTICASONE PROPIONATE
     Route: 045
  29. VITAMINS [Concomitant]
     Active Substance: VITAMINS

REACTIONS (10)
  - Increased upper airway secretion [Recovered/Resolved]
  - Cough [Recovered/Resolved]
  - Wheezing [Recovered/Resolved]
  - Rhinorrhoea [Recovered/Resolved]
  - Product dose omission issue [Recovered/Resolved]
  - Cough [Recovered/Resolved]
  - Cough [Recovered/Resolved]
  - Wheezing [Recovered/Resolved]
  - Wheezing [Recovered/Resolved]
  - Rhinorrhoea [Recovered/Resolved]

NARRATIVE: CASE EVENT DATE: 20221021
